FAERS Safety Report 20714193 (Version 3)
Quarter: 2022Q3

REPORT INFORMATION
  Report Type: Spontaneous
  Country: JP (occurrence: JP)
  Receive Date: 20220415
  Receipt Date: 20220726
  Transmission Date: 20221027
  Serious: Yes (Other)
  Sender: FDA-Public Use
  Company Number: JP-SA-2022SA127587

PATIENT
  Age: 69 Year
  Sex: Male

DRUGS (4)
  1. LANTUS SOLOSTAR [Suspect]
     Active Substance: INSULIN GLARGINE
     Indication: Diabetes mellitus
     Dosage: 8 MG, QD
     Route: 058
     Dates: start: 20220328, end: 20220412
  2. LANTUS SOLOSTAR [Suspect]
     Active Substance: INSULIN GLARGINE
     Dosage: 8 UNK, QD
     Route: 058
     Dates: start: 20220610, end: 20220610
  3. LANTUS SOLOSTAR [Suspect]
     Active Substance: INSULIN GLARGINE
     Dosage: 8 (UNIT, OTHER), QD
     Route: 058
     Dates: start: 20220611, end: 20220612
  4. ONGLYZA [SAXAGLIPTIN HYDROCHLORIDE] [Concomitant]
     Indication: Diabetes mellitus
     Dosage: 5 MG/DAY
     Route: 048
     Dates: start: 201606, end: 20220328

REACTIONS (4)
  - Rhabdomyolysis [Unknown]
  - Back pain [Unknown]
  - Myalgia [Unknown]
  - Pain [Unknown]

NARRATIVE: CASE EVENT DATE: 20220401
